FAERS Safety Report 20115602 (Version 2)
Quarter: 2022Q2

REPORT INFORMATION
  Report Type: Spontaneous
  Country: JP (occurrence: JP)
  Receive Date: 20211126
  Receipt Date: 20220419
  Transmission Date: 20220721
  Serious: Yes (Hospitalization, Other)
  Sender: FDA-Public Use
  Company Number: JP-SA-2021SA390676

PATIENT
  Age: 72 Year
  Sex: Male

DRUGS (1)
  1. OXALIPLATIN [Suspect]
     Active Substance: OXALIPLATIN
     Indication: Rectal cancer
     Dosage: UNK
     Route: 042

REACTIONS (4)
  - Stomal varices [Recovering/Resolving]
  - Varicose vein [Recovering/Resolving]
  - Stoma site haemorrhage [Recovering/Resolving]
  - Portal vein thrombosis [Recovering/Resolving]
